FAERS Safety Report 8717458 (Version 3)
Quarter: 2012Q4

REPORT INFORMATION
  Report Type: 
  Country: SE (occurrence: SE)
  Receive Date: 20120810
  Receipt Date: 20121010
  Transmission Date: 20130627
  Serious: Yes (Hospitalization, Other)
  Sender: FDA-Public Use
  Company Number: SE-JNJFOC-20120802884

PATIENT
  Sex: Male
  Weight: 73.4 kg

DRUGS (3)
  1. INVEGA [Suspect]
     Indication: PRODUCT USED FOR UNKNOWN INDICATION
     Route: 048
     Dates: start: 201110
  2. XEPLION [Suspect]
     Indication: PRODUCT USED FOR UNKNOWN INDICATION
     Dosage: 02-AUG (unspecified year)
     Route: 030
     Dates: start: 20120801
  3. XEPLION [Suspect]
     Indication: PRODUCT USED FOR UNKNOWN INDICATION
     Dosage: 07-OCT (unspecified year)
     Route: 030
     Dates: start: 20120807

REACTIONS (3)
  - Psychotic behaviour [Unknown]
  - Cerebral palsy [Unknown]
  - Mental impairment [Unknown]
